FAERS Safety Report 10926246 (Version 1)
Quarter: 2015Q1

REPORT INFORMATION
  Report Type: Spontaneous
  Country: FR (occurrence: FR)
  Receive Date: 20150318
  Receipt Date: 20150318
  Transmission Date: 20150721
  Serious: Yes (Hospitalization)
  Sender: FDA-Public Use
  Company Number: FR-MERCK-1503FRA005202

PATIENT
  Age: 44 Year
  Sex: Male

DRUGS (2)
  1. TEMODAL [Suspect]
     Active Substance: TEMOZOLOMIDE
     Dosage: 75 MG/KG, QD
     Route: 048
     Dates: start: 20141104
  2. KEPPRA [Suspect]
     Active Substance: LEVETIRACETAM
     Dosage: 250 MG, BID
     Route: 048
     Dates: start: 201409

REACTIONS (1)
  - Diabetes insipidus [Not Recovered/Not Resolved]

NARRATIVE: CASE EVENT DATE: 201412
